FAERS Safety Report 8727123 (Version 2)
Quarter: 2012Q4

REPORT INFORMATION
  Report Type: 
  Country: IT (occurrence: IT)
  Receive Date: 20120816
  Receipt Date: 20120903
  Transmission Date: 20130627
  Serious: Yes (Other)
  Sender: FDA-Public Use
  Company Number: IT-BRISTOL-MYERS SQUIBB COMPANY-16841405

PATIENT
  Age: 56 Year
  Sex: Male

DRUGS (5)
  1. SPRYCEL [Suspect]
     Indication: CHRONIC MYELOID LEUKAEMIA
     Dates: start: 20120709, end: 20120716
  2. DILATREND [Concomitant]
     Dosage: Tabs,25mgx2
     Route: 048
  3. CARDIOASPIRIN [Concomitant]
     Dosage: 1 Tab
     Route: 048
  4. ZESTRIL [Concomitant]
     Dosage: Tabs
     Route: 048
  5. POLASE [Concomitant]
     Dosage: Polase sachet 1 sachet/die orally
     Route: 048

REACTIONS (4)
  - Torsade de pointes [Recovering/Resolving]
  - Diarrhoea [Recovering/Resolving]
  - Asthenia [Recovering/Resolving]
  - Vertigo [Recovering/Resolving]
